FAERS Safety Report 20570965 (Version 1)
Quarter: 2022Q1

REPORT INFORMATION
  Report Type: Spontaneous
  Country: CA (occurrence: CA)
  Receive Date: 20220309
  Receipt Date: 20220309
  Transmission Date: 20220423
  Serious: Yes (Other)
  Sender: FDA-Public Use
  Company Number: CA-TEVA-2022-CA-2012877

PATIENT
  Sex: Female

DRUGS (1)
  1. TAMOXIFEN CITRATE [Suspect]
     Active Substance: TAMOXIFEN CITRATE
     Indication: Adjuvant therapy
     Dosage: 20 MILLIGRAM DAILY;
     Route: 048

REACTIONS (2)
  - Neoplasm progression [Unknown]
  - Treatment failure [Unknown]
